FAERS Safety Report 5923256-2 (Version None)
Quarter: 2008Q4

REPORT INFORMATION
  Report Type: 
  Country: None (occurrence: None)
  Receive Date: 20081015
  Receipt Date: 20081007
  Transmission Date: 20090506
  Serious: Yes (Other)
  Sender: FDA-Public Use
  Company Number: 2008SP016505

PATIENT
  Sex: Female
  Weight: 70.3075 kg

DRUGS (9)
  1. MIRALAX [Suspect]
     Indication: CONSTIPATION
     Dosage: 1 DF;BID;PO
     Route: 048
     Dates: start: 20071001
  2. MIRALAX [Suspect]
     Indication: INTESTINAL OBSTRUCTION
     Dosage: 1 DF;BID;PO
     Route: 048
     Dates: start: 20071001
  3. MIRALAX [Suspect]
     Indication: OFF LABEL USE
     Dosage: 1 DF;BID;PO
     Route: 048
     Dates: start: 20071001
  4. BACLOFEN [Concomitant]
  5. KLONOPIN [Concomitant]
  6. VITAMINS [Concomitant]
  7. FLAX SEED OIL [Concomitant]
  8. OLIVE LEAF [Concomitant]
  9. PROBIOTIC FEMINA [Concomitant]

REACTIONS (10)
  - BLOOD ALBUMIN INCREASED [None]
  - BLOOD ALKALINE PHOSPHATASE INCREASED [None]
  - BLOOD PRESSURE INCREASED [None]
  - DRUG INEFFECTIVE [None]
  - EYE SWELLING [None]
  - LIVER FUNCTION TEST ABNORMAL [None]
  - OEDEMA PERIPHERAL [None]
  - RENAL FUNCTION TEST ABNORMAL [None]
  - SWELLING [None]
  - SWELLING FACE [None]
